FAERS Safety Report 8252117-1 (Version None)
Quarter: 2012Q2

REPORT INFORMATION
  Report Type: 
  Country: None (occurrence: None)
  Receive Date: 20120402
  Receipt Date: 20110921
  Transmission Date: 20120825
  Serious: No
  Sender: FDA-Public Use
  Company Number: US-ABBOTT-11P-163-0732817-00

PATIENT
  Sex: Male
  Weight: 98.064 kg

DRUGS (5)
  1. PERCOCET [Concomitant]
     Indication: PAIN
  2. ANDROGEL [Suspect]
     Dates: start: 20110401
  3. ANDROGEL [Suspect]
     Indication: BLOOD TESTOSTERONE DECREASED
     Dates: start: 20101201, end: 20110401
  4. ANDROGEL [Suspect]
  5. BENICAR [Concomitant]
     Indication: HYPERTENSION

REACTIONS (8)
  - TESTICULAR ATROPHY [None]
  - FATIGUE [None]
  - AGITATION [None]
  - BLOOD TESTOSTERONE DECREASED [None]
  - DRUG ADMINISTRATION ERROR [None]
  - IRRITABILITY [None]
  - DRUG INEFFECTIVE [None]
  - TESTICULAR PAIN [None]
